FAERS Safety Report 7604297-6 (Version None)
Quarter: 2011Q3

REPORT INFORMATION
  Report Type: 
  Country: None (occurrence: None)
  Receive Date: 20110712
  Receipt Date: 20110630
  Transmission Date: 20111222
  Serious: Yes (Other)
  Sender: FDA-Public Use
  Company Number: PHHY2011JP58801

PATIENT
  Age: 18 Year
  Sex: Female

DRUGS (1)
  1. SANDOSTATIN LAR [Suspect]
     Indication: PITUITARY ENLARGEMENT
     Route: 030

REACTIONS (3)
  - MENSTRUATION IRREGULAR [None]
  - EYE MOVEMENT DISORDER [None]
  - EPILEPSY [None]
